FAERS Safety Report 13542506 (Version 1)
Quarter: 2017Q2

REPORT INFORMATION
  Report Type: Spontaneous
  Country: US (occurrence: US)
  Receive Date: 20170512
  Receipt Date: 20170512
  Transmission Date: 20170830
  Serious: Yes (Hospitalization)
  Sender: FDA-Public Use
  Company Number: US-ROCHE-709116

PATIENT
  Age: 67 Year
  Sex: Female
  Weight: 76.7 kg

DRUGS (3)
  1. GEMZAR [Concomitant]
     Active Substance: GEMCITABINE HYDROCHLORIDE
     Dosage: DOSE- 1360 ( UNIT NOT PROVIDED), THERAPY DATES : ( D1 D8 )
     Route: 065
  2. CARBOPLATIN. [Concomitant]
     Active Substance: CARBOPLATIN
     Dosage: DOSE- 180 ( UNIT NOT REPORTED), THERAPY DATES ( D1 D8)
     Route: 065
  3. AVASTIN [Suspect]
     Active Substance: BEVACIZUMAB
     Indication: BREAST CANCER METASTATIC
     Dosage: ROUTE- IVPB
     Route: 042
     Dates: start: 20100204, end: 20100519

REACTIONS (1)
  - Pulmonary embolism [Not Recovered/Not Resolved]

NARRATIVE: CASE EVENT DATE: 20100519
